FAERS Safety Report 13738813 (Version 1)
Quarter: 2017Q3

REPORT INFORMATION
  Report Type: Spontaneous
  Country: DE (occurrence: DE)
  Receive Date: 20170710
  Receipt Date: 20170710
  Transmission Date: 20171127
  Serious: Yes (Hospitalization)
  Sender: FDA-Public Use
  Company Number: DE-PFIZER INC-2017291843

PATIENT
  Age: 45 Year
  Sex: Female

DRUGS (1)
  1. UNACID [Suspect]
     Active Substance: AMPICILLIN SODIUM\SULBACTAM SODIUM
     Dosage: UNK
     Dates: start: 20170624, end: 20170630

REACTIONS (3)
  - Abdominal pain [Unknown]
  - Cardiovascular disorder [Unknown]
  - Nausea [Unknown]

NARRATIVE: CASE EVENT DATE: 2017
